FAERS Safety Report 23503637 (Version 1)
Quarter: 2024Q1

REPORT INFORMATION
  Report Type: Spontaneous
  Country: GB (occurrence: GB)
  Receive Date: 20240208
  Receipt Date: 20240208
  Transmission Date: 20240409
  Serious: Yes (Other)
  Sender: FDA-Public Use
  Company Number: None

PATIENT
  Sex: Female
  Weight: 125 kg

DRUGS (2)
  1. CEPHALEXIN [Suspect]
     Active Substance: CEPHALEXIN
     Indication: Bacteraemia
     Dosage: 2 GRAM, TID INJECTION (2 G TDS)
     Route: 065
     Dates: start: 20230206, end: 20230213
  2. CEPHALEXIN [Suspect]
     Active Substance: CEPHALEXIN
     Dosage: 1 GRAM, BID INJECTION (DUE TO RENAL IMPAIRMENT)
     Route: 065

REACTIONS (1)
  - Neutropenia [Recovered/Resolved]

NARRATIVE: CASE EVENT DATE: 20230213
